FAERS Safety Report 5981008-1 (Version None)
Quarter: 2008Q4

REPORT INFORMATION
  Report Type: 
  Country: None (occurrence: None)
  Receive Date: 20081205
  Receipt Date: 20081023
  Transmission Date: 20090506
  Serious: No
  Sender: FDA-Public Use
  Company Number: A0748125A

PATIENT
  Age: 34 Year
  Sex: Female

DRUGS (1)
  1. COMMIT [Suspect]
     Dates: end: 20080916

REACTIONS (3)
  - CRYING [None]
  - NICOTINE DEPENDENCE [None]
  - PRODUCT QUALITY ISSUE [None]
